FAERS Safety Report 16351795 (Version 4)
Quarter: 2019Q3

REPORT INFORMATION
  Report Type: Report from Study
  Country: CO (occurrence: CO)
  Receive Date: 20190524
  Receipt Date: 20190924
  Transmission Date: 20191004
  Serious: Yes (Hospitalization, Other)
  Sender: FDA-Public Use
  Company Number: CO-ACTELION-A-CH2019-185340

PATIENT
  Age: 39 Year
  Sex: Female
  Weight: 42 kg

DRUGS (1)
  1. MIGLUSTAT CAPSULE 100 MG NPC ROW [Suspect]
     Active Substance: MIGLUSTAT
     Indication: NIEMANN-PICK DISEASE
     Dosage: 100 MG, TID
     Route: 048
     Dates: start: 20160916, end: 20181214

REACTIONS (13)
  - Cell death [Not Recovered/Not Resolved]
  - Syncope [Not Recovered/Not Resolved]
  - Weight decreased [Not Recovered/Not Resolved]
  - Swelling [Recovering/Resolving]
  - Demyelination [Unknown]
  - Cerebral atrophy [Unknown]
  - Hospitalisation [Unknown]
  - Nervousness [Not Recovered/Not Resolved]
  - Influenza [Not Recovered/Not Resolved]
  - Gliosis [Unknown]
  - Ophthalmoplegia [Not Recovered/Not Resolved]
  - Paranasal cyst [Unknown]
  - Depression [Not Recovered/Not Resolved]

NARRATIVE: CASE EVENT DATE: 2018
